FAERS Safety Report 4445737-3 (Version None)
Quarter: 2004Q3

REPORT INFORMATION
  Report Type: 
  Country: None (occurrence: None)
  Receive Date: 20040903
  Receipt Date: 20040824
  Transmission Date: 20050211
  Serious: Yes (Hospitalization)
  Sender: FDA-Public Use
  Company Number: 2004-BP-07194AU

PATIENT
  Age: 85 Year
  Sex: Female

DRUGS (1)
  1. MOBIC [Suspect]
     Indication: ARTHRITIS
     Dosage: 10 MG (10 MG, DAILY) PO
     Route: 048
     Dates: start: 20040315, end: 20040531

REACTIONS (2)
  - DYSPNOEA EXACERBATED [None]
  - FLUID RETENTION [None]
